FAERS Safety Report 19129512 (Version 4)
Quarter: 2022Q2

REPORT INFORMATION
  Report Type: Spontaneous
  Country: US (occurrence: US)
  Receive Date: 20210413
  Receipt Date: 20220505
  Transmission Date: 20220721
  Serious: No
  Sender: FDA-Public Use
  Company Number: US-PFIZER INC-2021357828

PATIENT
  Age: 59 Year
  Sex: Female

DRUGS (2)
  1. XELJANZ XR [Suspect]
     Active Substance: TOFACITINIB CITRATE
     Indication: Rheumatoid arthritis
     Dosage: 11 MG, DAILY
     Route: 048
     Dates: start: 202010
  2. XELJANZ XR [Suspect]
     Active Substance: TOFACITINIB CITRATE
     Indication: Psoriatic arthropathy
     Dosage: 11 MG, DAILY
     Route: 048
     Dates: start: 20201003

REACTIONS (8)
  - Gastrointestinal disorder [Not Recovered/Not Resolved]
  - Constipation [Not Recovered/Not Resolved]
  - Fall [Unknown]
  - Inappropriate schedule of product administration [Unknown]
  - Headache [Not Recovered/Not Resolved]
  - Heat exhaustion [Not Recovered/Not Resolved]
  - Blood pressure increased [Not Recovered/Not Resolved]
  - Pain [Not Recovered/Not Resolved]
